FAERS Safety Report 11858327 (Version 1)
Quarter: 2015Q4

REPORT INFORMATION
  Report Type: Spontaneous
  Country: PT (occurrence: PT)
  Receive Date: 20151222
  Receipt Date: 20151222
  Transmission Date: 20160305
  Serious: Yes (Other)
  Sender: FDA-Public Use
  Company Number: PT-ACTAVIS-2015-28270

PATIENT
  Age: 39 Year
  Sex: Female
  Weight: 76 kg

DRUGS (2)
  1. DOCETAXEL ACTAVIS [Suspect]
     Active Substance: DOCETAXEL
     Indication: BREAST CANCER
     Dosage: 130 MG, 1/ THREE WEEKS
     Route: 042
     Dates: start: 20151019, end: 20151019
  2. EPIRRUBICINA TEVA [Concomitant]
     Active Substance: EPIRUBICIN
     Indication: BREAST CANCER
     Dosage: 160 MG, 1/ THREE WEEKS
     Route: 042
     Dates: start: 20151019, end: 20151019

REACTIONS (2)
  - Injection site discolouration [Recovering/Resolving]
  - Injection site erythema [Recovering/Resolving]

NARRATIVE: CASE EVENT DATE: 20151029
